FAERS Safety Report 10191617 (Version 1)
Quarter: 2014Q2

REPORT INFORMATION
  Report Type: Spontaneous
  Country: IT (occurrence: IT)
  Receive Date: 20140523
  Receipt Date: 20140523
  Transmission Date: 20141212
  Serious: Yes (Other)
  Sender: FDA-Public Use
  Company Number: IT-TEVA-482261ISR

PATIENT
  Age: 39 Year
  Sex: Female

DRUGS (2)
  1. CEFTRIAXONE DISODIUM [Suspect]
     Indication: BRONCHITIS
     Route: 030
     Dates: start: 20140502, end: 20140502
  2. PANTORC 14 CPR GASTRORESISTENTI 20 MG [Concomitant]
     Indication: GASTRIC ULCER

REACTIONS (4)
  - Malaise [Recovered/Resolved]
  - Generalised erythema [Recovered/Resolved]
  - Pruritus generalised [Recovered/Resolved]
  - Vomiting [Recovered/Resolved]
